FAERS Safety Report 16338385 (Version 1)
Quarter: 2019Q2

REPORT INFORMATION
  Report Type: Spontaneous
  Country: AR (occurrence: AR)
  Receive Date: 20190521
  Receipt Date: 20190521
  Transmission Date: 20190711
  Serious: Yes (Life-Threatening)
  Sender: FDA-Public Use
  Company Number: AR-AMREGENT-20190993

PATIENT
  Age: 27 Year
  Sex: Female
  Weight: 50 kg

DRUGS (1)
  1. VENOFER [Suspect]
     Active Substance: IRON SUCROSE
     Dosage: 300 MG
     Route: 041
     Dates: start: 201903

REACTIONS (8)
  - Respiratory distress [Unknown]
  - Dyspepsia [Unknown]
  - Back pain [Unknown]
  - Dysphonia [Unknown]
  - Dysgeusia [Unknown]
  - Limb discomfort [Unknown]
  - Hypersensitivity [Unknown]
  - Abdominal pain [Unknown]

NARRATIVE: CASE EVENT DATE: 201903
